FAERS Safety Report 6103209-4 (Version None)
Quarter: 2009Q1

REPORT INFORMATION
  Report Type: 
  Country: None (occurrence: None)
  Receive Date: 20090305
  Receipt Date: 20090220
  Transmission Date: 20090719
  Serious: Yes (Disabling, Other)
  Sender: FDA-Public Use
  Company Number: US-PFIZER INC-2008049229

PATIENT
  Sex: Female
  Weight: 90.703 kg

DRUGS (15)
  1. LYRICA [Suspect]
     Indication: FIBROMYALGIA
     Dosage: 150 MG, 2X/DAY
     Route: 048
     Dates: start: 20080401, end: 20080501
  2. GEODON [Suspect]
     Indication: BIPOLAR DISORDER
     Route: 048
     Dates: start: 20080601, end: 20080601
  3. ABILIFY [Concomitant]
     Indication: BIPOLAR DISORDER
     Dosage: 40 MG, UNK
  4. VALSARTAN [Concomitant]
     Route: 048
  5. INSULIN [Concomitant]
  6. PROTONIX [Concomitant]
     Route: 048
  7. VALTREX [Concomitant]
     Route: 048
  8. FUROSEMIDE [Concomitant]
     Route: 048
  9. MULTI-VITAMINS [Concomitant]
     Route: 048
  10. NAPROXEN [Concomitant]
     Route: 048
  11. PAXIL CR [Concomitant]
     Route: 048
  12. LORAZEPAM [Concomitant]
     Route: 048
  13. FISH OIL [Concomitant]
     Route: 048
  14. ALL OTHER THERAPEUTIC PRODUCTS [Concomitant]
     Route: 048
  15. VITACAL [Concomitant]
     Route: 048

REACTIONS (9)
  - ABASIA [None]
  - AMNESIA [None]
  - ANGINA UNSTABLE [None]
  - BALANCE DISORDER [None]
  - CEREBROVASCULAR ACCIDENT [None]
  - DYSPNOEA [None]
  - MOBILITY DECREASED [None]
  - MUTISM [None]
  - SOMNOLENCE [None]
